FAERS Safety Report 4656695-0 (Version None)
Quarter: 2005Q2

REPORT INFORMATION
  Report Type: 
  Country: None (occurrence: None)
  Receive Date: 20050331
  Receipt Date: 20041021
  Transmission Date: 20051028
  Serious: No
  Sender: FDA-Public Use
  Company Number: UK093869

PATIENT
  Sex: Female

DRUGS (3)
  1. NEUPOGEN [Suspect]
  2. GRANOCYTE [Suspect]
  3. NEULASTA [Suspect]

REACTIONS (3)
  - DYSPNOEA EXERTIONAL [None]
  - FEELING ABNORMAL [None]
  - PAIN [None]
